FAERS Safety Report 24449370 (Version 1)
Quarter: 2024Q4

REPORT INFORMATION
  Report Type: Other
  Country: US (occurrence: US)
  Receive Date: 20241017
  Receipt Date: 20241017
  Transmission Date: 20250115
  Serious: Yes (Hospitalization, Other)
  Sender: ANI
  Company Number: US-ANIPHARMA-012522

PATIENT
  Age: 65 Year
  Sex: Female

DRUGS (1)
  1. RISPERIDONE [Suspect]
     Active Substance: RISPERIDONE
     Indication: Major depression

REACTIONS (4)
  - Respiratory dyskinesia [Unknown]
  - Vocal cord dysfunction [Unknown]
  - Tachypnoea [Unknown]
  - Tardive dyskinesia [Unknown]
